FAERS Safety Report 9129791 (Version 2)
Quarter: 2013Q2

REPORT INFORMATION
  Report Type: Spontaneous
  Country: FR (occurrence: FR)
  Receive Date: 20130228
  Receipt Date: 20130422
  Transmission Date: 20140414
  Serious: Yes (Other)
  Sender: FDA-Public Use
  Company Number: FR-JNJFOC-20130212646

PATIENT
  Age: 32 Year
  Sex: Female

DRUGS (10)
  1. XEPLION [Suspect]
     Indication: PRODUCT USED FOR UNKNOWN INDICATION
     Route: 030
     Dates: start: 20130212
  2. XEPLION [Suspect]
     Indication: PRODUCT USED FOR UNKNOWN INDICATION
     Route: 030
     Dates: start: 20130312
  3. XEPLION [Suspect]
     Indication: PRODUCT USED FOR UNKNOWN INDICATION
     Route: 030
     Dates: start: 201302
  4. IMOVANE [Concomitant]
     Route: 048
     Dates: start: 20130130
  5. LARGACTIL [Concomitant]
     Route: 048
     Dates: start: 20130218
  6. LARGACTIL [Concomitant]
     Route: 048
     Dates: start: 20130130
  7. LEPTICUR [Concomitant]
     Route: 065
     Dates: start: 20130130
  8. LOXAPAC [Concomitant]
     Route: 065
     Dates: start: 20130130
  9. TEMESTA [Concomitant]
     Dosage: 0.5 DOSE THREE TIMES A DAY
     Route: 065
     Dates: start: 20130130
  10. VENLAFAXINE [Concomitant]
     Route: 065
     Dates: start: 20130131

REACTIONS (2)
  - Brief psychotic disorder with marked stressors [Recovered/Resolved]
  - Delirium [Recovered/Resolved]
